FAERS Safety Report 21773289 (Version 3)
Quarter: 2023Q1

REPORT INFORMATION
  Report Type: Report from Study
  Country: US (occurrence: US)
  Receive Date: 20221223
  Receipt Date: 20230103
  Transmission Date: 20230417
  Serious: No
  Sender: FDA-Public Use
  Company Number: US-ABBVIE-4245094

PATIENT
  Age: 61 Year
  Sex: Female
  Weight: 102.51 kg

DRUGS (19)
  1. HUMIRA [Suspect]
     Active Substance: ADALIMUMAB
     Indication: Rheumatoid arthritis
     Dosage: STRENGTH: 40 MILLIGRAM
     Route: 058
     Dates: start: 201307
  2. HYDROCODONE [Concomitant]
     Active Substance: HYDROCODONE
     Indication: Pain management
  3. OXYCODONE [Concomitant]
     Active Substance: OXYCODONE
     Indication: Pain management
  4. PROMETHAZINE [Concomitant]
     Active Substance: PROMETHAZINE HYDROCHLORIDE
     Indication: Nausea
  5. SERTRALINE [Concomitant]
     Active Substance: SERTRALINE HYDROCHLORIDE
     Indication: Schizophrenia
  6. ATORVASTATIN [Concomitant]
     Active Substance: ATORVASTATIN
     Indication: Blood cholesterol increased
  7. VALSARTAN [Concomitant]
     Active Substance: VALSARTAN
     Indication: Blood pressure measurement
  8. TIZANIDINE [Concomitant]
     Active Substance: TIZANIDINE
     Indication: Muscle spasms
  9. LEVOCETIRIZINE [Concomitant]
     Active Substance: LEVOCETIRIZINE
     Indication: Hypersensitivity
  10. VITAMIN D [Concomitant]
     Active Substance: VITAMIN D NOS
     Indication: Product used for unknown indication
  11. VENTOLIN [Concomitant]
     Active Substance: ALBUTEROL SULFATE
     Indication: Product used for unknown indication
  12. PANTOPRAZOLE [Concomitant]
     Active Substance: PANTOPRAZOLE
     Indication: Gastrooesophageal reflux disease
  13. TRAZODONE [Concomitant]
     Active Substance: TRAZODONE HYDROCHLORIDE
     Indication: Insomnia
  14. THERA-M [Concomitant]
     Indication: Anaemia
  15. ADVAIR HFA [Concomitant]
     Active Substance: FLUTICASONE PROPIONATE\SALMETEROL XINAFOATE
     Indication: Product used for unknown indication
  16. ARIPIPRAZOLE [Concomitant]
     Active Substance: ARIPIPRAZOLE
     Indication: Product used for unknown indication
  17. OXYBUTYNIN [Concomitant]
     Active Substance: OXYBUTYNIN
     Indication: Gallbladder disorder
  18. FERROUS SULFATE [Concomitant]
     Active Substance: FERROUS SULFATE
     Indication: Anaemia
  19. MONTELUKAST [Concomitant]
     Active Substance: MONTELUKAST SODIUM
     Indication: Asthma

REACTIONS (4)
  - Spinal osteoarthritis [Not Recovered/Not Resolved]
  - Back pain [Recovered/Resolved]
  - Back pain [Not Recovered/Not Resolved]
  - Arthralgia [Unknown]

NARRATIVE: CASE EVENT DATE: 20210621
